FAERS Safety Report 14141513 (Version 1)
Quarter: 2017Q4

REPORT INFORMATION
  Report Type: Spontaneous
  Country: US (occurrence: US)
  Receive Date: 20171028
  Receipt Date: 20171028
  Transmission Date: 20180321
  Serious: No
  Sender: FDA-Public Use
  Company Number: None

PATIENT
  Age: 54 Year
  Sex: Female
  Weight: 99 kg

DRUGS (13)
  1. BUTRANS [Concomitant]
     Active Substance: BUPRENORPHINE
  2. LOSARTAN POT [Concomitant]
     Active Substance: LOSARTAN POTASSIUM
  3. CARVEDILOL. [Concomitant]
     Active Substance: CARVEDILOL
  4. ANTI-ITCH CRE [Concomitant]
  5. PRAVASTATIN. [Concomitant]
     Active Substance: PRAVASTATIN
  6. HYDROXYZ HCL [Concomitant]
     Active Substance: HYDROXYZINE HYDROCHLORIDE
  7. LEVOTHYROXIN [Concomitant]
     Active Substance: LEVOTHYROXINE
  8. DEXTROAMPHET SACCHARAT, AMPHET ASPARTATE, DEXTROAMPHET SULFATE AND AMPHET SULFAT [Suspect]
     Active Substance: AMPHETAMINE ASPARTATE\AMPHETAMINE SULFATE\DEXTROAMPHETAMINE SACCHARATE\DEXTROAMPHETAMINE SULFATE
     Indication: NARCOLEPSY
     Route: 048
     Dates: start: 20171004, end: 20171028
  9. CYMBALTA [Concomitant]
     Active Substance: DULOXETINE HYDROCHLORIDE
  10. HUMIRA [Concomitant]
     Active Substance: ADALIMUMAB
  11. POT CL [Concomitant]
  12. TORSEMIDE. [Concomitant]
     Active Substance: TORSEMIDE
  13. URSO FORTE [Concomitant]
     Active Substance: URSODIOL

REACTIONS (2)
  - Drug ineffective [None]
  - Product measured potency issue [None]

NARRATIVE: CASE EVENT DATE: 20171027
